FAERS Safety Report 21457348 (Version 1)
Quarter: 2022Q4

REPORT INFORMATION
  Report Type: Spontaneous
  Country: FR (occurrence: FR)
  Receive Date: 20221014
  Receipt Date: 20221014
  Transmission Date: 20230112
  Serious: Yes (Hospitalization)
  Sender: FDA-Public Use
  Company Number: None

PATIENT
  Age: 81 Year
  Sex: Female
  Weight: 55 kg

DRUGS (1)
  1. ESOMEPRAZOLE [Suspect]
     Active Substance: ESOMEPRAZOLE
     Indication: Gastrooesophageal reflux disease
     Dosage: 40 MG/DAY THEN 80MG/DAY SINCE JANUARY 2021
     Dates: start: 2012, end: 202206

REACTIONS (2)
  - Anaemia vitamin B12 deficiency [Recovered/Resolved]
  - Polymyositis [Recovering/Resolving]

NARRATIVE: CASE EVENT DATE: 20211101
